FAERS Safety Report 7084787-8 (Version None)
Quarter: 2010Q4

REPORT INFORMATION
  Report Type: 
  Country: None (occurrence: None)
  Receive Date: 20101105
  Receipt Date: 20101027
  Transmission Date: 20110411
  Serious: Yes (Hospitalization)
  Sender: FDA-Public Use
  Company Number: US-BIOGENIDEC-2010BI030451

PATIENT
  Age: 34 Year
  Sex: Male

DRUGS (2)
  1. AVONEX [Suspect]
     Indication: MULTIPLE SCLEROSIS
     Route: 030
     Dates: start: 20060421, end: 20061115
  2. AVONEX [Suspect]
     Route: 030
     Dates: start: 20100803

REACTIONS (3)
  - ABDOMINAL PAIN [None]
  - PNEUMONIA [None]
  - VOMITING [None]
